FAERS Safety Report 4700803-X (Version None)
Quarter: 2005Q2

REPORT INFORMATION
  Report Type: 
  Country: None (occurrence: None)
  Receive Date: 20050624
  Receipt Date: 20040513
  Transmission Date: 20051028
  Serious: Yes (Other)
  Sender: FDA-Public Use
  Company Number: 367511

PATIENT
  Age: 52 Year
  Sex: Male
  Weight: 92 kg

DRUGS (5)
  1. CAPECITABINE (CAPECITABINE) [Suspect]
     Indication: COLORECTAL CANCER
     Dates: end: 20040325
  2. AVASTIN [Suspect]
     Indication: COLORECTAL CANCER
     Dosage: 460 MG 1 PER 2 WEEK INTRAVENOUS
     Route: 042
     Dates: start: 20040304, end: 20040325
  3. OXALIPLATIN (OXALIPLATIN) [Suspect]
     Indication: COLORECTAL CANCER
     Dates: end: 20040325
  4. MACROBID [Concomitant]
  5. ZOLPIDEM TARTRATE [Concomitant]

REACTIONS (1)
  - DEEP VEIN THROMBOSIS [None]
